FAERS Safety Report 5306482-5 (Version None)
Quarter: 2007Q2

REPORT INFORMATION
  Report Type: 
  Country: None (occurrence: None)
  Receive Date: 20070416
  Receipt Date: 20070330
  Transmission Date: 20071010
  Serious: Yes (Other)
  Sender: FDA-Public Use
  Company Number: PAR_1499-2007

PATIENT
  Age: 87 Year
  Sex: Female

DRUGS (8)
  1. IBUPROFEN [Suspect]
     Dosage: 200 MG PRN
  2. ASPIRIN [Suspect]
     Dosage: 325 MG QOD PO
     Route: 048
  3. MELOXICAM [Suspect]
     Dosage: 7.5 MG QDAY
  4. ARICEPT [Concomitant]
  5. CODEINE SUL TAB [Concomitant]
  6. FERROUS GLUCONATE [Concomitant]
  7. LOSEC /00661201/ [Concomitant]
  8. SENOKOT /00142201 [Concomitant]

REACTIONS (2)
  - GASTROINTESTINAL HAEMORRHAGE [None]
  - SYNCOPE [None]
